FAERS Safety Report 5962397-0 (Version None)
Quarter: 2008Q4

REPORT INFORMATION
  Report Type: 
  Country: None (occurrence: None)
  Receive Date: 20081121
  Receipt Date: 20081111
  Transmission Date: 20090506
  Serious: Yes (Death, Other)
  Sender: FDA-Public Use
  Company Number: US-PFIZER INC-2008095598

PATIENT
  Sex: Female
  Weight: 84.09 kg

DRUGS (12)
  1. LYRICA [Suspect]
     Indication: PAIN IN EXTREMITY
     Dosage: DAILY DOSE:175MG
     Dates: start: 20070101
  2. MULTI-VITAMINS [Concomitant]
  3. MOTRIN [Concomitant]
  4. TYLENOL (CAPLET) [Concomitant]
  5. LISINOPRIL [Concomitant]
  6. HYDROCHLOROTHIAZIDE [Concomitant]
  7. METOPROLOL [Concomitant]
  8. ACYCLOVIR [Concomitant]
  9. STOOL SOFTENER [Concomitant]
  10. IMIPRAMINE [Concomitant]
  11. DIPHENHYDRAMINE HCL [Concomitant]
  12. DURAGESIC-100 [Concomitant]

REACTIONS (1)
  - DEATH [None]
